FAERS Safety Report 13628486 (Version 4)
Quarter: 2017Q3

REPORT INFORMATION
  Report Type: Spontaneous
  Country: CA (occurrence: CA)
  Receive Date: 20170607
  Receipt Date: 20170811
  Transmission Date: 20171127
  Serious: Yes (Life-Threatening, Hospitalization, Disabling)
  Sender: FDA-Public Use
  Company Number: CA-JNJFOC-20170603488

PATIENT
  Age: 23 Year
  Sex: Female
  Weight: 55.7 kg

DRUGS (2)
  1. INVEGA TRINZA [Suspect]
     Active Substance: PALIPERIDONE PALMITATE
     Indication: PSYCHOTIC DISORDER
     Route: 030
     Dates: start: 20170314, end: 2017
  2. INTUNIV [Concomitant]
     Active Substance: GUANFACINE HYDROCHLORIDE
     Indication: PRODUCT USED FOR UNKNOWN INDICATION
     Route: 065
     Dates: start: 2017

REACTIONS (6)
  - Upper limb fracture [Unknown]
  - Femur fracture [Unknown]
  - Pulmonary contusion [Unknown]
  - Major depression [Unknown]
  - Suicide attempt [Unknown]
  - Drug ineffective [Recovered/Resolved]

NARRATIVE: CASE EVENT DATE: 201705
